FAERS Safety Report 5225923-5 (Version None)
Quarter: 2007Q1

REPORT INFORMATION
  Report Type: 
  Country: None (occurrence: None)
  Receive Date: 20070201
  Receipt Date: 20070119
  Transmission Date: 20070707
  Serious: Yes (Hospitalization, Other)
  Sender: FDA-Public Use
  Company Number: PHHO2007US01500

PATIENT
  Age: 67 Year
  Sex: Male
  Weight: 94 kg

DRUGS (4)
  1. RAD [Suspect]
     Indication: HEART TRANSPLANT
     Dosage: 0.75 MG, BID
     Route: 048
     Dates: start: 20070106
  2. NEORAL [Suspect]
     Indication: HEART TRANSPLANT
     Dosage: 25 MG, BID
     Route: 048
     Dates: start: 20070108, end: 20070116
  3. ANTITHYMOCYTE IMMUNOGLOBULIN (RABBIT) [Suspect]
     Indication: HEART TRANSPLANT
     Route: 042
     Dates: start: 20070106, end: 20070108
  4. PREDNISONE [Suspect]
     Indication: HEART TRANSPLANT
     Dosage: 50 MG, BID
     Route: 048
     Dates: start: 20070107

REACTIONS (13)
  - ATRIAL FIBRILLATION [None]
  - DYSPNOEA [None]
  - FLUID OVERLOAD [None]
  - GASTROOESOPHAGEAL REFLUX DISEASE [None]
  - HIATUS HERNIA [None]
  - INFECTION [None]
  - NEPHROPATHY TOXIC [None]
  - OEDEMA [None]
  - OROPHARYNGEAL CANDIDIASIS [None]
  - PLEURAL EFFUSION [None]
  - PROSTATE EXAMINATION ABNORMAL [None]
  - PSEUDOMONAS INFECTION [None]
  - RENAL FAILURE ACUTE [None]
